FAERS Safety Report 10035686 (Version 1)
Quarter: 2014Q1

REPORT INFORMATION
  Report Type: Spontaneous
  Country: US (occurrence: None)
  Receive Date: 20140306
  Receipt Date: 20140306
  Transmission Date: 20141002
  Serious: Yes (Hospitalization)
  Sender: FDA-Public Use
  Company Number: 163-21880-12123265

PATIENT
  Age: 76 Year
  Sex: Female
  Weight: 48.54 kg

DRUGS (1)
  1. REVLIMID [Suspect]
     Indication: MYELODYSPLASTIC SYNDROME
     Dosage: 10 MG, 1 IN  1 D, PO?
     Route: 048
     Dates: start: 20121206

REACTIONS (1)
  - Malaise [None]
